FAERS Safety Report 9506391 (Version 1)
Quarter: 2013Q1

REPORT INFORMATION
  Report Type: Spontaneous
  Country: US (occurrence: None)
  Receive Date: 20130301
  Receipt Date: 20130301
  Transmission Date: 20140127
  Serious: Yes (Hospitalization, Other)
  Sender: FDA-Public Use
  Company Number: RB-37162-2012

PATIENT
  Sex: Male
  Weight: 3.7 kg

DRUGS (5)
  1. SUBUTEX [Suspect]
     Indication: DRUG DEPENDENCE
     Route: 064
  2. PRENATAL VITAMINS [Concomitant]
  3. PHENERGAN [Concomitant]
  4. NICOTINE [Concomitant]
  5. CAFFEINE [Concomitant]
     Dates: end: 20120202

REACTIONS (4)
  - Foetal exposure during pregnancy [None]
  - Drug withdrawal syndrome neonatal [None]
  - Tremor [None]
  - Muscle tightness [None]
